FAERS Safety Report 7769786-2 (Version None)
Quarter: 2011Q3

REPORT INFORMATION
  Report Type: 
  Country: None (occurrence: None)
  Receive Date: 20110922
  Receipt Date: 20110113
  Transmission Date: 20111222
  Serious: No
  Sender: FDA-Public Use
  Company Number: US-ASTRAZENECA-2007UW13667

PATIENT
  Age: 43 Year
  Sex: Male
  Weight: 81.6 kg

DRUGS (30)
  1. ACETAMINOPHEN [Concomitant]
  2. BACLOFEN [Concomitant]
     Route: 048
  3. HYDROXYZINE [Concomitant]
     Indication: NERVOUSNESS
     Route: 048
     Dates: start: 20041007, end: 20051008
  4. SIMVASTATIN [Concomitant]
  5. CLOTRIMAZOLE [Concomitant]
  6. SEROQUEL [Suspect]
     Indication: NERVOUSNESS
     Dosage: 30 TO 300 MG
     Route: 048
     Dates: start: 20041012, end: 20060926
  7. NYSTATIN [Concomitant]
     Dosage: 10000 UNIT/ML
  8. METHOCARBAMOL [Concomitant]
  9. NYSTATIN [Concomitant]
  10. COMBIVENT [Concomitant]
  11. CLARITIN [Concomitant]
     Route: 048
  12. SEROQUEL [Suspect]
     Dosage: 100 - 300 MG
     Route: 048
     Dates: start: 20041012, end: 20070626
  13. LISINOPRIL [Concomitant]
  14. IBUPROFEN [Concomitant]
  15. CROMOLYN SODIUM [Concomitant]
  16. SEROQUEL [Suspect]
     Route: 048
     Dates: start: 20041012, end: 20051013
  17. BUPROPION HCL [Concomitant]
  18. FELODIPINE [Concomitant]
  19. METFORMIN [Concomitant]
     Route: 048
  20. SERTRALINE HYDROCHLORIDE [Concomitant]
     Route: 048
  21. LORATADINE [Concomitant]
     Indication: HYPERSENSITIVITY
     Route: 048
     Dates: start: 20040923, end: 20050924
  22. FLUNISOLIDE [Concomitant]
  23. GLIPIZIDE [Concomitant]
     Dosage: 5 - 10 MG
     Route: 048
  24. SEROQUEL [Suspect]
     Indication: POST-TRAUMATIC STRESS DISORDER
     Dosage: 30 TO 300 MG
     Route: 048
     Dates: start: 20041012, end: 20060926
  25. SEROQUEL [Suspect]
     Route: 048
     Dates: start: 20041012, end: 20051013
  26. SEROQUEL [Suspect]
     Dosage: 100 - 300 MG
     Route: 048
     Dates: start: 20041012, end: 20070626
  27. TRAZODONE HYDROCHLORIDE [Concomitant]
  28. HALOPERIDOL [Concomitant]
     Route: 048
  29. TEMAZEPAM [Concomitant]
     Route: 048
  30. HYDROXYZINE [Concomitant]
     Indication: HYPERSENSITIVITY
     Route: 048
     Dates: start: 20041007, end: 20051008

REACTIONS (9)
  - TYPE 2 DIABETES MELLITUS [None]
  - ONYCHOMYCOSIS [None]
  - HYPERLIPIDAEMIA [None]
  - DIARRHOEA [None]
  - OSTEOARTHRITIS [None]
  - COUGH [None]
  - ABDOMINAL DISTENSION [None]
  - VISION BLURRED [None]
  - MALAISE [None]
